FAERS Safety Report 22013397 (Version 2)
Quarter: 2023Q2

REPORT INFORMATION
  Report Type: Report from Study
  Country: US (occurrence: US)
  Receive Date: 20230220
  Receipt Date: 20230414
  Transmission Date: 20230721
  Serious: Yes (Other)
  Sender: FDA-Public Use
  Company Number: US-JAZZ-2023-US-003860

PATIENT
  Sex: Female

DRUGS (4)
  1. XYREM [Suspect]
     Active Substance: SODIUM OXYBATE
     Indication: Narcolepsy
  2. XYREM [Suspect]
     Active Substance: SODIUM OXYBATE
     Indication: Cataplexy
  3. SAXENDA [Concomitant]
     Active Substance: LIRAGLUTIDE
     Indication: Product used for unknown indication
     Dosage: 0000
     Dates: start: 20221210
  4. MELOXICAM [Concomitant]
     Active Substance: MELOXICAM
     Indication: Product used for unknown indication
     Dosage: 0000
     Dates: start: 20230201

REACTIONS (12)
  - Bursitis [Unknown]
  - Hypokalaemia [Not Recovered/Not Resolved]
  - Sciatica [Unknown]
  - Muscle spasms [Unknown]
  - Magnesium deficiency [Unknown]
  - Hot flush [Unknown]
  - Tendonitis [Unknown]
  - Menstrual disorder [Unknown]
  - Heavy menstrual bleeding [Unknown]
  - Premature menopause [Unknown]
  - Brain fog [Unknown]
  - Weight decreased [Unknown]
